FAERS Safety Report 22378378 (Version 1)
Quarter: 2023Q2

REPORT INFORMATION
  Report Type: Spontaneous
  Country: PL (occurrence: PL)
  Receive Date: 20230529
  Receipt Date: 20230529
  Transmission Date: 20230722
  Serious: Yes (Other)
  Sender: FDA-Public Use
  Company Number: PL-AMGEN-POLSP2023089018

PATIENT
  Age: 69 Year
  Sex: Female

DRUGS (4)
  1. PANITUMUMAB [Suspect]
     Active Substance: PANITUMUMAB
     Dosage: UNK
     Route: 065
     Dates: start: 2019
  2. LEUCOVORIN [Concomitant]
     Active Substance: LEUCOVORIN
     Indication: Colorectal cancer metastatic
     Dosage: UNK
     Dates: start: 2019, end: 2019
  3. FLUOROURACIL [Concomitant]
     Active Substance: FLUOROURACIL
     Indication: Colorectal cancer metastatic
     Dosage: UNK
     Dates: start: 2019, end: 2019
  4. OXALIPLATIN [Concomitant]
     Active Substance: OXALIPLATIN
     Indication: Colorectal cancer metastatic
     Dosage: UNK
     Dates: start: 2019, end: 2019

REACTIONS (8)
  - Polyneuropathy [Recovering/Resolving]
  - Metastases to stomach [Unknown]
  - Gastrectomy [Unknown]
  - Colectomy [Unknown]
  - Renal cyst [Unknown]
  - Therapy partial responder [Recovered/Resolved]
  - Rash pustular [Unknown]
  - Dry skin [Unknown]

NARRATIVE: CASE EVENT DATE: 20190101
